FAERS Safety Report 11738702 (Version 1)
Quarter: 2015Q4

REPORT INFORMATION
  Report Type: Spontaneous
  Country: FR (occurrence: FR)
  Receive Date: 20151113
  Receipt Date: 20151113
  Transmission Date: 20160304
  Serious: Yes (Death, Life-Threatening, Hospitalization, Other)
  Sender: FDA-Public Use
  Company Number: FR-ASTRAZENECA-2015SF04214

PATIENT
  Age: 62 Year
  Sex: Female

DRUGS (12)
  1. CEFEPIME [Suspect]
     Active Substance: CEFEPIME HYDROCHLORIDE
     Indication: INFECTION
     Route: 042
     Dates: start: 20150829, end: 20150906
  2. CORDARONE [Suspect]
     Active Substance: AMIODARONE HYDROCHLORIDE
     Route: 065
     Dates: start: 20150821, end: 20150831
  3. COLIMYCINE [Suspect]
     Active Substance: COLISTIMETHATE SODIUM
     Indication: INFECTION
     Route: 042
     Dates: start: 20150829, end: 20150906
  4. FOSFOMYCIN [Suspect]
     Active Substance: FOSFOMYCIN
     Indication: INFECTION
     Route: 042
     Dates: start: 20150829, end: 20150906
  5. CILASTATIN/IMIPENEM [Concomitant]
     Active Substance: CILASTATIN SODIUM\IMIPENEM
     Dates: start: 20150821, end: 20150829
  6. TARDYFERON [Concomitant]
     Active Substance: FERROUS SULFATE\FOLIC ACID
  7. INEXIUM IV [Suspect]
     Active Substance: ESOMEPRAZOLE
     Dosage: UNKNOWN
     Route: 042
     Dates: start: 20150902, end: 20150907
  8. INEXIUM [Suspect]
     Active Substance: ESOMEPRAZOLE
     Route: 048
     Dates: start: 20150822, end: 20150901
  9. ACUPAN [Suspect]
     Active Substance: NEFOPAM HYDROCHLORIDE
     Indication: PAIN
     Route: 048
     Dates: start: 20150831, end: 20150913
  10. BISOPROLOL HEMIFUMARATE [Concomitant]
     Active Substance: BISOPROLOL FUMARATE
  11. STILNOX [Suspect]
     Active Substance: ZOLPIDEM TARTRATE
     Indication: INSOMNIA
     Route: 048
     Dates: start: 20150821, end: 20150906
  12. PARACETAMOL [Suspect]
     Active Substance: ACETAMINOPHEN
     Indication: PAIN
     Dosage: STRENGTH: 10 MG/ML
     Route: 042
     Dates: start: 20150827, end: 20150913

REACTIONS (5)
  - Septic shock [Unknown]
  - Stevens-Johnson syndrome [Recovering/Resolving]
  - Disseminated intravascular coagulation [Unknown]
  - Seizure [Unknown]
  - Multi-organ failure [Fatal]

NARRATIVE: CASE EVENT DATE: 20150903
